FAERS Safety Report 6186253-0 (Version None)
Quarter: 2009Q2

REPORT INFORMATION
  Report Type: 
  Country: None (occurrence: None)
  Receive Date: 20090511
  Receipt Date: 20090501
  Transmission Date: 20091009
  Serious: Yes (Other)
  Sender: FDA-Public Use
  Company Number: PHHY2009IE16565

PATIENT
  Age: 75 Year
  Sex: Female

DRUGS (2)
  1. DIOVAN HCT [Suspect]
  2. DIOVAN [Suspect]

REACTIONS (2)
  - BLOOD SODIUM DECREASED [None]
  - VISUAL IMPAIRMENT [None]
